FAERS Safety Report 15953123 (Version 1)
Quarter: 2019Q1

REPORT INFORMATION
  Report Type: Spontaneous
  Country: CA (occurrence: CA)
  Receive Date: 20190212
  Receipt Date: 20190212
  Transmission Date: 20190417
  Serious: Yes (Other)
  Sender: FDA-Public Use
  Company Number: CA-IMPAX LABORATORIES, LLC-2019-IPXL-00442

PATIENT

DRUGS (2)
  1. DESMOPRESSIN ACETATE IR [Suspect]
     Active Substance: DESMOPRESSIN ACETATE
     Indication: PRODUCT USED FOR UNKNOWN INDICATION
     Dosage: UNK
     Route: 065
  2. TRAMETINIB [Interacting]
     Active Substance: TRAMETINIB
     Indication: GLIOMA
     Dosage: UNK
     Route: 065

REACTIONS (2)
  - Hyponatraemia [Unknown]
  - Drug interaction [Unknown]
